FAERS Safety Report 21168297 (Version 1)
Quarter: 2022Q3

REPORT INFORMATION
  Report Type: Spontaneous
  Country: US (occurrence: US)
  Receive Date: 20220803
  Receipt Date: 20220803
  Transmission Date: 20221027
  Serious: No
  Sender: FDA-Public Use
  Company Number: US-BAYER-2022A102760

PATIENT
  Age: 34 Year
  Sex: Female

DRUGS (1)
  1. MIRENA [Suspect]
     Active Substance: LEVONORGESTREL
     Dosage: 20?G/DAY
     Route: 015
     Dates: start: 20220719, end: 20220719

REACTIONS (3)
  - Post procedural discomfort [None]
  - Procedural pain [None]
  - Complication of device insertion [None]

NARRATIVE: CASE EVENT DATE: 20220719
